FAERS Safety Report 7422741-4 (Version None)
Quarter: 2011Q2

REPORT INFORMATION
  Report Type: 
  Country: None (occurrence: None)
  Receive Date: 20110414
  Receipt Date: 20110414
  Transmission Date: 20111010
  Serious: Yes (Hospitalization)
  Sender: FDA-Public Use
  Company Number: None

PATIENT
  Sex: Male
  Weight: 93.441 kg

DRUGS (1)
  1. BENZONATATE [Suspect]
     Indication: COUGH
     Dates: start: 20110215

REACTIONS (1)
  - ANGIOEDEMA [None]
